FAERS Safety Report 5345895-2 (Version None)
Quarter: 2007Q2

REPORT INFORMATION
  Report Type: 
  Country: None (occurrence: None)
  Receive Date: 20070605
  Receipt Date: 20070531
  Transmission Date: 20071010
  Serious: Yes (Other)
  Sender: FDA-Public Use
  Company Number: A0642461A

PATIENT
  Age: 64 Year
  Sex: Female

DRUGS (5)
  1. ADVAIR DISKUS 100/50 [Suspect]
     Dosage: 250MCG TWICE PER DAY
     Route: 055
     Dates: start: 20070101, end: 20070303
  2. BENICAR [Concomitant]
  3. BONIVA [Concomitant]
  4. ASPIRIN [Concomitant]
  5. SPIRIVA [Concomitant]

REACTIONS (4)
  - BONE PAIN [None]
  - JOINT DISLOCATION [None]
  - MUSCULOSKELETAL STIFFNESS [None]
  - SENSATION OF HEAVINESS [None]
